FAERS Safety Report 4824705-3 (Version None)
Quarter: 2005Q4

REPORT INFORMATION
  Report Type: 
  Country: None (occurrence: None)
  Receive Date: 20051108
  Receipt Date: 20051021
  Transmission Date: 20060501
  Serious: Yes (Other)
  Sender: FDA-Public Use
  Company Number: DE_051017288

PATIENT
  Age: 52 Year
  Sex: Female
  Weight: 65 kg

DRUGS (1)
  1. YENTREVE (DULOXETINE HYDROCHLORIDE) [Suspect]
     Indication: INCONTINENCE
     Dosage: 40 MG/2 DAY
     Dates: start: 20041201, end: 20050901

REACTIONS (3)
  - BLOOD PRESSURE INCREASED [None]
  - RENAL COLIC [None]
  - RESTLESSNESS [None]
